FAERS Safety Report 9996318 (Version 1)
Quarter: 2014Q1

REPORT INFORMATION
  Report Type: Spontaneous
  Country: AU (occurrence: AU)
  Receive Date: 20140311
  Receipt Date: 20140311
  Transmission Date: 20141002
  Serious: Yes (Other)
  Sender: FDA-Public Use
  Company Number: AU-CELGENEUS-008-21880-14023658

PATIENT
  Age: 73 Year
  Sex: Male

DRUGS (13)
  1. REVLIMID [Suspect]
     Indication: PLASMA CELL MYELOMA
     Route: 048
     Dates: start: 20130514, end: 20131203
  2. THALIDOMIDE [Suspect]
     Indication: PLASMA CELL MYELOMA
     Route: 048
     Dates: start: 20100803
  3. THALIDOMIDE [Suspect]
     Route: 048
     Dates: start: 20110125, end: 20120207
  4. THALIDOMIDE [Suspect]
     Route: 048
     Dates: end: 20121218
  5. DEXAMETHASONE [Concomitant]
     Indication: PLASMA CELL MYELOMA
     Route: 065
     Dates: start: 20100701
  6. DEXAMETHASONE [Concomitant]
     Route: 065
     Dates: start: 20100803
  7. DEXAMETHASONE [Concomitant]
     Route: 065
     Dates: start: 20130205, end: 20130424
  8. DEXAMETHASONE [Concomitant]
     Route: 065
     Dates: start: 20130514, end: 20131203
  9. CYCLOPHOSPHAMIDE [Concomitant]
     Indication: PLASMA CELL MYELOMA
     Route: 065
     Dates: start: 20100803
  10. CYCLOPHOSPHAMIDE [Concomitant]
     Route: 065
     Dates: start: 20101018
  11. CYCLOPHOSPHAMIDE [Concomitant]
     Route: 065
     Dates: start: 20101117
  12. CYCLOPHOSPHAMIDE [Concomitant]
     Route: 065
     Dates: start: 20130205, end: 20130424
  13. CYCLOPHOSPHAMIDE [Concomitant]
     Route: 065
     Dates: start: 20130514, end: 20131203

REACTIONS (4)
  - Squamous cell carcinoma of skin [Unknown]
  - Pancytopenia [Unknown]
  - Plasma cell myeloma [Unknown]
  - Skin lesion [Unknown]
